FAERS Safety Report 10349334 (Version 1)
Quarter: 2014Q3

REPORT INFORMATION
  Report Type: Spontaneous
  Country: DE (occurrence: DE)
  Receive Date: 20140730
  Receipt Date: 20140730
  Transmission Date: 20150326
  Serious: Yes (Other)
  Sender: FDA-Public Use
  Company Number: DE-UCBSA-2014006672

PATIENT
  Age: 57 Year
  Sex: Male

DRUGS (9)
  1. ZOPLICONE 7.5 [Suspect]
     Active Substance: ZOPICLONE
     Dosage: 1 TABLET; TOTAL AMOUNT: 7.5MG
     Route: 048
     Dates: start: 20140721, end: 20140721
  2. PANTOPRAZOL 40 [Suspect]
     Active Substance: PANTOPRAZOLE SODIUM
     Dosage: 1 TABLET; TOTAL AMOUNT: 40 (UNSPECIFIED UNITS)
     Route: 048
     Dates: start: 20140721, end: 20140721
  3. MELPERON 25 [Suspect]
     Active Substance: MELPERONE
     Dosage: 3 TABLETS; TOTAL AMOUNT: 75MG
     Route: 048
     Dates: start: 20140721, end: 20140721
  4. KEPPRA [Suspect]
     Active Substance: LEVETIRACETAM
     Dosage: 2 TABLETS; TOTAL AMOUNT:1000MG
     Route: 048
     Dates: start: 20140721, end: 20140721
  5. DELIX 2.5 [Suspect]
     Active Substance: RAMIPRIL
     Dosage: 1 TABLET; TOTAL AMUNT: 2.5MG
     Route: 048
     Dates: start: 20140721, end: 20140721
  6. ASS 100 [Suspect]
     Active Substance: ASPIRIN
     Dosage: 1 TABLET; TOTAL AMOUNT: 100MG
     Route: 048
     Dates: start: 20140721, end: 20140721
  7. VALORON N [Suspect]
     Active Substance: NALOXONE HYDROCHLORIDE\TILIDINE HYDROCHLORIDE
     Dosage: 1 TABLET 100/8 AND 1 TAB 150/12
     Route: 048
     Dates: start: 20140721, end: 20140721
  8. DURASPIRON 100 COMP [Suspect]
     Active Substance: FUROSEMIDE\SPIRONOLACTONE
     Dosage: 1 TABLET; TOTAL AMOUNT: 100MG
     Route: 048
     Dates: start: 20140721, end: 20140721
  9. LASIX [Suspect]
     Active Substance: FUROSEMIDE
     Dosage: 0.25 TABLET; TOTAL AMOUNT: 125MG
     Route: 048
     Dates: start: 20140721, end: 20140721

REACTIONS (2)
  - Accidental exposure to product [Unknown]
  - Somnolence [Unknown]

NARRATIVE: CASE EVENT DATE: 20140721
